FAERS Safety Report 4364600-X (Version None)
Quarter: 2004Q2

REPORT INFORMATION
  Report Type: 
  Country: None (occurrence: None)
  Receive Date: 20040521
  Receipt Date: 20040508
  Transmission Date: 20050107
  Serious: Yes (Other)
  Sender: FDA-Public Use
  Company Number: 2004031093

PATIENT
  Age: 30 Year
  Sex: Female
  Weight: 99.7913 kg

DRUGS (3)
  1. ZOLOFT [Suspect]
     Indication: PANIC ATTACK
     Dosage: 25 MG (25 MG, 1 IN 1 D), ORAL
     Route: 048
  2. ROFECOXIB [Concomitant]
  3. PANTOPRAZOLE (PANTOPRAZOLE) [Concomitant]

REACTIONS (13)
  - AGITATION [None]
  - CRYING [None]
  - DRUG EFFECT DECREASED [None]
  - EYE MOVEMENT DISORDER [None]
  - EYE PAIN [None]
  - FATIGUE [None]
  - FEELING ABNORMAL [None]
  - HEADACHE [None]
  - HYPERAESTHESIA [None]
  - INFLUENZA LIKE ILLNESS [None]
  - NAUSEA [None]
  - PAIN [None]
  - TREATMENT NONCOMPLIANCE [None]
